APPROVED DRUG PRODUCT: GRISACTIN
Active Ingredient: GRISEOFULVIN, MICROCRYSTALLINE
Strength: 500MG
Dosage Form/Route: TABLET;ORAL
Application: A060212 | Product #001
Applicant: WYETH AYERST LABORATORIES
Approved: Approved Prior to Jan 1, 1982 | RLD: No | RS: No | Type: DISCN